FAERS Safety Report 9817566 (Version 4)
Quarter: 2014Q2

REPORT INFORMATION
  Report Type: Report from Study
  Country: DE (occurrence: DE)
  Receive Date: 20140115
  Receipt Date: 20140403
  Transmission Date: 20141212
  Serious: Yes (Death, Hospitalization)
  Sender: FDA-Public Use
  Company Number: DE-ROCHE-1322116

PATIENT
  Age: 67 Year
  Sex: Female
  Weight: 60 kg

DRUGS (8)
  1. BEVACIZUMAB [Suspect]
     Indication: LUNG ADENOCARCINOMA METASTATIC
     Dosage: FIRST AND LAST DOSE OF BEVACIZUMAB PRIOR TO THE EVENTS.
     Route: 042
     Dates: start: 20131024, end: 20131025
  2. FOLSAN [Suspect]
     Indication: FOLATE DEFICIENCY
     Route: 048
     Dates: start: 20131025
  3. LYRICA [Suspect]
     Indication: PAIN
     Dosage: 150 MG
     Route: 048
     Dates: start: 20131025
  4. IBUHEXAL [Suspect]
     Indication: PAIN
     Route: 048
     Dates: start: 20131025
  5. FENTANYL [Suspect]
     Indication: PAIN
     Route: 003
     Dates: start: 20131210
  6. TORASEMID [Suspect]
     Indication: PRODUCT USED FOR UNKNOWN INDICATION
     Route: 048
  7. BISOPROLOL [Concomitant]
     Indication: HYPERTENSION
  8. ENAHEXAL [Concomitant]
     Indication: HYPERTENSION

REACTIONS (4)
  - Sepsis [Fatal]
  - Myocardial infarction [Fatal]
  - Febrile neutropenia [Not Recovered/Not Resolved]
  - Renal failure chronic [Not Recovered/Not Resolved]
